FAERS Safety Report 7529332-5 (Version None)
Quarter: 2011Q2

REPORT INFORMATION
  Report Type: 
  Country: None (occurrence: None)
  Receive Date: 20110607
  Receipt Date: 20110601
  Transmission Date: 20111010
  Serious: Yes (Other)
  Sender: FDA-Public Use
  Company Number: BR-ROCHE-780382

PATIENT
  Sex: Female
  Weight: 83 kg

DRUGS (2)
  1. CLONAZEPAM [Suspect]
     Indication: PANIC DISORDER
     Dosage: DOSAGE REGIMEN: HALF TABLET/DAY
     Route: 065
     Dates: start: 20010101
  2. ALDOMET [Concomitant]
     Dosage: FREQUENCY:PER DAY
     Route: 065
     Dates: start: 20100901

REACTIONS (1)
  - PRE-ECLAMPSIA [None]
